FAERS Safety Report 5281190-8 (Version None)
Quarter: 2007Q1

REPORT INFORMATION
  Report Type: 
  Country: None (occurrence: None)
  Receive Date: 20061218
  Receipt Date: 20061009
  Transmission Date: 20070707
  Serious: Yes (Hospitalization)
  Sender: FDA-Public Use
  Company Number: US200610001431

PATIENT
  Age: 71 Year
  Sex: Female

DRUGS (2)
  1. HUMULIN L [Suspect]
     Dosage: 20 U, DAILY (1/D)
     Dates: start: 19860101
  2. HUMULIN N [Suspect]

REACTIONS (2)
  - BLOOD GLUCOSE INCREASED [None]
  - MALAISE [None]
